FAERS Safety Report 21366948 (Version 1)
Quarter: 2022Q3

REPORT INFORMATION
  Report Type: Spontaneous
  Country: US (occurrence: US)
  Receive Date: 20220923
  Receipt Date: 20220923
  Transmission Date: 20221026
  Serious: No
  Sender: FDA-Public Use
  Company Number: US-SA-SAC20220916000385

PATIENT
  Age: 58 Year
  Sex: Female

DRUGS (2)
  1. DUPIXENT [Suspect]
     Active Substance: DUPILUMAB
     Indication: Rectal cancer
     Dosage: 300 MG Q2W
     Route: 058
     Dates: start: 20210803
  2. DUPIXENT [Suspect]
     Active Substance: DUPILUMAB
     Indication: Dermatitis atopic

REACTIONS (4)
  - Scar [Unknown]
  - Therapeutic product effect decreased [Unknown]
  - Product use in unapproved indication [Unknown]
  - Accidental exposure to product [Unknown]

NARRATIVE: CASE EVENT DATE: 20210803
